FAERS Safety Report 9960299 (Version 1)
Quarter: 2014Q1

REPORT INFORMATION
  Report Type: Spontaneous
  Country: HU (occurrence: HU)
  Receive Date: 20140305
  Receipt Date: 20140305
  Transmission Date: 20141002
  Serious: Yes (Other)
  Sender: FDA-Public Use
  Company Number: HU-JNJFOC-20140216238

PATIENT
  Sex: Male

DRUGS (2)
  1. XARELTO [Suspect]
     Indication: EMBOLISM VENOUS
     Route: 048
     Dates: start: 201304
  2. XARELTO [Suspect]
     Indication: DEEP VEIN THROMBOSIS
     Route: 048
     Dates: start: 201304

REACTIONS (2)
  - Vascular rupture [Unknown]
  - Haemorrhage [Unknown]
